FAERS Safety Report 9841467 (Version 1)
Quarter: 2014Q1

REPORT INFORMATION
  Report Type: Spontaneous
  Country: IQ (occurrence: IQ)
  Receive Date: 20140124
  Receipt Date: 20140124
  Transmission Date: 20141002
  Serious: Yes (Hospitalization)
  Sender: FDA-Public Use
  Company Number: IQ-SA-2014SA007453

PATIENT
  Age: 60 Year
  Sex: Female

DRUGS (8)
  1. CLOPIDOGREL BISULFATE [Suspect]
     Indication: THALAMIC INFARCTION
     Route: 048
     Dates: start: 201210
  2. ASPIRIN [Suspect]
     Indication: THALAMIC INFARCTION
     Route: 048
     Dates: start: 201210
  3. ENALAPRIL [Concomitant]
     Indication: HYPERTENSION
  4. ENALAPRIL [Concomitant]
     Indication: HYPERTENSION
     Dosage: DOSE INCREASED
  5. METOPROLOL [Concomitant]
     Indication: HYPERTENSION
  6. METOPROLOL [Concomitant]
     Indication: HYPERTENSION
     Dosage: DOSE INCREASED
  7. ATORVASTATIN [Concomitant]
  8. ATORVASTATIN [Concomitant]
     Dosage: DOSE INCREASED

REACTIONS (8)
  - Thalamus haemorrhage [Unknown]
  - Headache [Unknown]
  - Depressed level of consciousness [Recovering/Resolving]
  - Extensor plantar response [Unknown]
  - Hemiparesis [Unknown]
  - Loss of consciousness [Recovering/Resolving]
  - Quadriplegia [Unknown]
  - Dysphagia [Unknown]
